FAERS Safety Report 16056547 (Version 1)
Quarter: 2019Q2

REPORT INFORMATION
  Report Type: Spontaneous
  Country: US (occurrence: US)
  Receive Date: 20190309
  Receipt Date: 20190309
  Transmission Date: 20190711
  Serious: Yes (Hospitalization)
  Sender: FDA-Public Use
  Company Number: None

PATIENT
  Age: 52 Year
  Sex: Male
  Weight: 92.25 kg

DRUGS (1)
  1. CIPROFLAXIN [Suspect]
     Active Substance: CIPROFLOXACIN
     Indication: URINARY TRACT INFECTION
     Route: 048
     Dates: start: 20180905, end: 20180909

REACTIONS (9)
  - Feeling abnormal [None]
  - Gait inability [None]
  - Myalgia [None]
  - Ligament pain [None]
  - Eye discharge [None]
  - Tinnitus [None]
  - Pubic pain [None]
  - Joint stiffness [None]
  - Hypoaesthesia [None]

NARRATIVE: CASE EVENT DATE: 20180908
